FAERS Safety Report 11727777 (Version 2)
Quarter: 2016Q1

REPORT INFORMATION
  Report Type: Spontaneous
  Country: JP (occurrence: JP)
  Receive Date: 20151112
  Receipt Date: 20160210
  Transmission Date: 20160525
  Serious: Yes (Other)
  Sender: FDA-Public Use
  Company Number: JP-ARBOR PHARMACEUTICALS, LLC-JP-2015ARB002437

PATIENT

DRUGS (2)
  1. GLIADEL [Suspect]
     Active Substance: CARMUSTINE
     Indication: GLIOBLASTOMA
     Dosage: UNK
  2. GLIADEL [Suspect]
     Active Substance: CARMUSTINE
     Dosage: 61.6 MG, 8 TOTAL
     Dates: start: 20151019

REACTIONS (3)
  - Cerebral infarction [Not Recovered/Not Resolved]
  - Brain oedema [Recovering/Resolving]
  - Hemiplegia [Not Recovered/Not Resolved]

NARRATIVE: CASE EVENT DATE: 20151020
